FAERS Safety Report 12449368 (Version 2)
Quarter: 2016Q2

REPORT INFORMATION
  Report Type: Report from Study
  Country: US (occurrence: US)
  Receive Date: 20160608
  Receipt Date: 20160624
  Transmission Date: 20160815
  Serious: No
  Sender: FDA-Public Use
  Company Number: PHEH2016US013982

PATIENT
  Age: 66 Year

DRUGS (3)
  1. COSENTYX [Suspect]
     Active Substance: SECUKINUMAB
     Dosage: 300 MG, QW
     Route: 058
     Dates: start: 20160518
  2. COSENTYX [Suspect]
     Active Substance: SECUKINUMAB
     Dosage: UNK, QW
     Route: 065
     Dates: start: 20160609
  3. COSENTYX [Suspect]
     Active Substance: SECUKINUMAB
     Indication: PSORIASIS
     Dosage: UNK, QW
     Route: 030
     Dates: start: 20160406

REACTIONS (5)
  - Injection site swelling [Recovering/Resolving]
  - Lip swelling [Recovering/Resolving]
  - Incorrect route of drug administration [Unknown]
  - Respiratory tract infection [Unknown]
  - Injection site rash [Recovering/Resolving]

NARRATIVE: CASE EVENT DATE: 20160406
